FAERS Safety Report 10025418 (Version 1)
Quarter: 2014Q1

REPORT INFORMATION
  Report Type: Spontaneous
  Country: US (occurrence: None)
  Receive Date: 20140314
  Receipt Date: 20140314
  Transmission Date: 20141002
  Serious: Yes (Other)
  Sender: FDA-Public Use
  Company Number: AUR-APL-2014-02603

PATIENT
  Age: 39 Year
  Sex: Female

DRUGS (1)
  1. NAPROXEN [Suspect]
     Indication: HEADACHE

REACTIONS (6)
  - Flushing [None]
  - Palpitations [None]
  - Bone pain [None]
  - Macule [None]
  - Urticaria [None]
  - Papule [None]
